FAERS Safety Report 5042864-7 (Version None)
Quarter: 2006Q3

REPORT INFORMATION
  Report Type: 
  Country: None (occurrence: None)
  Receive Date: 20060705
  Receipt Date: 20060605
  Transmission Date: 20061208
  Serious: Yes (Hospitalization)
  Sender: FDA-Public Use
  Company Number: JP-JPN-A200601874

PATIENT
  Age: 46 Year
  Sex: Male
  Weight: 55 kg

DRUGS (13)
  1. ZEFIX [Suspect]
     Indication: HEPATITIS B
     Dosage: 100MG PER DAY
     Route: 048
     Dates: start: 20060427
  2. ACINON [Concomitant]
     Indication: GASTRITIS
     Dosage: 300MG PER DAY
     Route: 048
     Dates: start: 20060428
  3. BIOFERMIN [Concomitant]
     Dosage: 3G PER DAY
     Route: 048
     Dates: start: 20060426
  4. PROMAC [Concomitant]
     Indication: GASTRITIS
     Dosage: 1G PER DAY
     Route: 048
     Dates: start: 20060429
  5. MAGLAX [Concomitant]
     Dosage: 1320MG PER DAY
     Route: 048
     Dates: start: 20060520
  6. PLASMA [Concomitant]
     Dates: start: 20060427
  7. ANTITHROMBIN III [Concomitant]
     Dates: start: 20060427
  8. DIAZEPAM [Concomitant]
     Route: 050
     Dates: start: 20060518
  9. PHENOBARBITAL TAB [Concomitant]
     Route: 030
     Dates: start: 20060518
  10. VALPROATE SODIUM [Concomitant]
     Dates: start: 20060520
  11. OXYGEN [Concomitant]
     Indication: OXYGEN SATURATION DECREASED
  12. LACTULOSE [Concomitant]
     Dosage: 45MG PER DAY
     Route: 048
     Dates: start: 20060425, end: 20060517
  13. KANAMYCIN [Concomitant]
     Dosage: 1000MG PER DAY
     Route: 048
     Dates: start: 20060428, end: 20060502

REACTIONS (8)
  - ANTITHROMBIN III DECREASED [None]
  - CONVULSION [None]
  - FALL [None]
  - LOSS OF CONSCIOUSNESS [None]
  - OXYGEN SATURATION DECREASED [None]
  - PLATELET COUNT DECREASED [None]
  - PROTHROMBIN LEVEL DECREASED [None]
  - PYREXIA [None]
